FAERS Safety Report 25644058 (Version 3)
Quarter: 2025Q3

REPORT INFORMATION
  Report Type: Spontaneous
  Country: US (occurrence: US)
  Receive Date: 20250805
  Receipt Date: 20250918
  Transmission Date: 20251021
  Serious: Yes (Other)
  Sender: BAYER HEALTHCARE PHARMACEUTICALS INC.
  Company Number: US-BAYER-2025A103150

PATIENT
  Age: 55 Year
  Sex: Female

DRUGS (1)
  1. MIRENA [Suspect]
     Active Substance: LEVONORGESTREL
     Dosage: 20?G/DAY
     Route: 015
     Dates: end: 2024

REACTIONS (3)
  - Device breakage [None]
  - Complication of device removal [None]
  - Abdominal pain lower [None]

NARRATIVE: CASE EVENT DATE: 20150101
